FAERS Safety Report 7282277-0 (Version None)
Quarter: 2010Q4

REPORT INFORMATION
  Report Type: 
  Country: None (occurrence: None)
  Receive Date: 20101221
  Receipt Date: 20100830
  Transmission Date: 20110411
  Serious: Yes (Life-Threatening, Hospitalization)
  Sender: FDA-Public Use
  Company Number: WAES 1008USA04154

PATIENT
  Age: 85 Year
  Sex: Female
  Weight: 64.8644 kg

DRUGS (4)
  1. JANUVIA [Suspect]
     Indication: TYPE 2 DIABETES MELLITUS
     Dosage: PO, 100 MG/DAILY/PO
     Route: 048
     Dates: start: 20100215, end: 20100305
  2. JANUVIA [Suspect]
     Indication: TYPE 2 DIABETES MELLITUS
     Dosage: PO, 100 MG/DAILY/PO
     Route: 048
     Dates: start: 20080601
  3. ZOLOFT [Concomitant]
  4. INSULIN [Concomitant]

REACTIONS (1)
  - PANCREATITIS [None]
